FAERS Safety Report 21403337 (Version 2)
Quarter: 2023Q2

REPORT INFORMATION
  Report Type: Spontaneous
  Country: US (occurrence: US)
  Receive Date: 20221003
  Receipt Date: 20230503
  Transmission Date: 20230722
  Serious: No
  Sender: FDA-Public Use
  Company Number: US-ELI_LILLY_AND_COMPANY-US202209011952

PATIENT
  Age: 65 Year
  Sex: Female

DRUGS (4)
  1. VERZENIO [Suspect]
     Active Substance: ABEMACICLIB
     Indication: Breast cancer
     Dosage: 150 MG, UNKNOWN
     Route: 065
     Dates: start: 202202
  2. VERZENIO [Suspect]
     Active Substance: ABEMACICLIB
     Dosage: 150 MG, UNKNOWN
     Route: 065
     Dates: start: 202202, end: 202302
  3. VERZENIO [Suspect]
     Active Substance: ABEMACICLIB
     Dosage: 150 MG, UNKNOWN
     Route: 048
     Dates: start: 202303
  4. ANASTROZOLE [Concomitant]
     Active Substance: ANASTROZOLE
     Indication: Product used for unknown indication

REACTIONS (7)
  - Androgenetic alopecia [Unknown]
  - Full blood count decreased [Not Recovered/Not Resolved]
  - Hiccups [Not Recovered/Not Resolved]
  - Nausea [Recovering/Resolving]
  - Headache [Unknown]
  - Diarrhoea [Recovering/Resolving]
  - Vomiting [Not Recovered/Not Resolved]

NARRATIVE: CASE EVENT DATE: 20220901
